FAERS Safety Report 5708399-0 (Version None)
Quarter: 2008Q2

REPORT INFORMATION
  Report Type: 
  Country: None (occurrence: None)
  Receive Date: 20080417
  Receipt Date: 20080409
  Transmission Date: 20081010
  Serious: Yes (Other)
  Sender: FDA-Public Use
  Company Number: US-ELI_LILLY_AND_COMPANY-US200801002715

PATIENT
  Sex: Female
  Weight: 88.435 kg

DRUGS (5)
  1. BYETTA [Suspect]
     Dosage: UNK, UNKNOWN
  2. MICARDIS [Concomitant]
     Dosage: UNK, UNKNOWN
  3. METFORMIN HCL [Concomitant]
     Dosage: UNK, UNKNOWN
  4. SIMVASTATIN [Concomitant]
     Dosage: UNK, UNKNOWN
  5. SULAR [Concomitant]
     Dosage: UNK, UNKNOWN

REACTIONS (6)
  - CONTUSION [None]
  - DIZZINESS [None]
  - LOSS OF CONSCIOUSNESS [None]
  - MUSCULOSKELETAL PAIN [None]
  - NECK PAIN [None]
  - ROAD TRAFFIC ACCIDENT [None]
